FAERS Safety Report 9031028 (Version 1)
Quarter: 2013Q1

REPORT INFORMATION
  Report Type: Spontaneous
  Country: SE (occurrence: SE)
  Receive Date: 20130123
  Receipt Date: 20130123
  Transmission Date: 20140127
  Serious: Yes (Death, Life-Threatening, Other)
  Sender: FDA-Public Use
  Company Number: SE-B.I. PHARMACEUTICALS,INC./RIDGEFIELD-2013-SW-00017SW

PATIENT
  Age: 86 Year
  Sex: Female

DRUGS (7)
  1. PRADAXA [Suspect]
     Indication: ATRIAL FIBRILLATION
     Dosage: STRENGTH: 110 MG
     Route: 048
     Dates: start: 20120705, end: 20120927
  2. MIRTAZAPIN [Concomitant]
  3. FOLACIN [Concomitant]
     Dosage: STRENGTH: 1 MG
  4. METOLAZON [Concomitant]
     Dosage: STRENGTH: 5 MG
  5. KALEORID [Concomitant]
     Dosage: PROLONGED-RELEASE TABLET, STRENGTH: 750 MG
  6. IMPUGAN [Concomitant]
     Dosage: STRENGTH: 500 MG
  7. SPIRONOLACTONE [Concomitant]

REACTIONS (2)
  - Haematochezia [Fatal]
  - Haematuria [Fatal]
